FAERS Safety Report 10877245 (Version 1)
Quarter: 2015Q1

REPORT INFORMATION
  Report Type: Spontaneous
  Country: CA (occurrence: CA)
  Receive Date: 20150302
  Receipt Date: 20150302
  Transmission Date: 20150721
  Serious: Yes (Other)
  Sender: FDA-Public Use
  Company Number: CA-GE HEALTHCARE MEDICAL DIAGNOSTICS-OMPQ-PR-1502S-0149

PATIENT
  Sex: Female
  Weight: 56.75 kg

DRUGS (3)
  1. OMNIPAQUE [Suspect]
     Active Substance: IOHEXOL
     Indication: DIAGNOSTIC PROCEDURE
  2. VENTOLIN PUFFER [Concomitant]
  3. OMNIPAQUE [Suspect]
     Active Substance: IOHEXOL
     Indication: PELVIC PAIN
     Route: 042

REACTIONS (4)
  - Cough [Recovered/Resolved]
  - Sensation of foreign body [Unknown]
  - Sneezing [Recovered/Resolved]
  - Oropharyngeal discomfort [Recovered/Resolved]
